FAERS Safety Report 20311195 (Version 3)
Quarter: 2023Q1

REPORT INFORMATION
  Report Type: Spontaneous
  Country: JP (occurrence: JP)
  Receive Date: 20220107
  Receipt Date: 20230316
  Transmission Date: 20230418
  Serious: Yes (Hospitalization, Other)
  Sender: FDA-Public Use
  Company Number: JP-MSD-M2021-11725

PATIENT
  Age: 67 Year
  Sex: Female
  Weight: 64 kg

DRUGS (1)
  1. KEYTRUDA [Suspect]
     Active Substance: PEMBROLIZUMAB
     Indication: Lung adenocarcinoma stage IV
     Dosage: 200 MILLIGRAM, Q3W
     Route: 041
     Dates: start: 2018

REACTIONS (4)
  - Gastroschisis [Recovered/Resolved]
  - Intestinal prolapse [Recovered/Resolved]
  - Pemphigoid [Recovered/Resolved]
  - Stoma creation [Unknown]

NARRATIVE: CASE EVENT DATE: 20210201
